FAERS Safety Report 5018644-5 (Version None)
Quarter: 2006Q2

REPORT INFORMATION
  Report Type: 
  Country: None (occurrence: None)
  Receive Date: 20060414
  Receipt Date: 20060104
  Transmission Date: 20061013
  Serious: No
  Sender: FDA-Public Use
  Company Number: 2006SP000045

PATIENT
  Age: 44 Year
  Sex: Male
  Weight: 92.0802 kg

DRUGS (6)
  1. LUNESTA [Suspect]
     Indication: INSOMNIA
     Dosage: SEE IMAGE
     Route: 048
     Dates: start: 20050601, end: 20050701
  2. LUNESTA [Suspect]
     Indication: INSOMNIA
     Dosage: SEE IMAGE
     Route: 048
     Dates: start: 20050701
  3. TRAZODONE HCL [Concomitant]
  4. SKELAXIN [Concomitant]
  5. NEURONTIN [Concomitant]
  6. FLEXERIL [Concomitant]

REACTIONS (2)
  - DRUG INEFFECTIVE [None]
  - MIDDLE INSOMNIA [None]
